FAERS Safety Report 5818690-5 (Version None)
Quarter: 2008Q3

REPORT INFORMATION
  Report Type: 
  Country: None (occurrence: None)
  Receive Date: 20080723
  Receipt Date: 20080711
  Transmission Date: 20090109
  Serious: Yes (Hospitalization, Other)
  Sender: FDA-Public Use
  Company Number: GB-JNJFOC-20080703223

PATIENT
  Sex: Female
  Weight: 84 kg

DRUGS (4)
  1. REMICADE [Suspect]
     Indication: RHEUMATOID ARTHRITIS
     Route: 040
  2. CYCLOSPORINE [Concomitant]
  3. IBUPROFEN [Concomitant]
  4. MEDROXYPROGESTERONE [Concomitant]

REACTIONS (1)
  - KNEE OPERATION [None]
